FAERS Safety Report 4914352-7 (Version None)
Quarter: 2006Q1

REPORT INFORMATION
  Report Type: 
  Country: None (occurrence: None)
  Receive Date: 20060213
  Receipt Date: 20060203
  Transmission Date: 20060701
  Serious: Yes (Death)
  Sender: FDA-Public Use
  Company Number: 2006-US-00429

PATIENT
  Age: 76 Year
  Sex: Male

DRUGS (1)
  1. CLOZAPINE [Suspect]
     Dosage: 37.5 MG QD ORAL
     Route: 048
     Dates: start: 20020301, end: 20051201

REACTIONS (1)
  - PNEUMONIA [None]
